FAERS Safety Report 20328182 (Version 1)
Quarter: 2022Q1

REPORT INFORMATION
  Report Type: Report from Study
  Country: CA (occurrence: CA)
  Receive Date: 20220112
  Receipt Date: 20220112
  Transmission Date: 20220423
  Serious: Yes (Death, Hospitalization, Other)
  Sender: FDA-Public Use
  Company Number: CA-PFIZER INC-202200019480

PATIENT
  Age: 76 Year
  Sex: Male
  Weight: 80 kg

DRUGS (3)
  1. INLYTA [Suspect]
     Active Substance: AXITINIB
     Dosage: 5 MG, 2X/DAY
     Route: 048
  2. PEMBROLIZUMAB [Suspect]
     Active Substance: PEMBROLIZUMAB
     Indication: Renal cell carcinoma
     Dosage: 200 MG, EVERY 3 WEEKS
     Route: 042
  3. PEMBROLIZUMAB [Suspect]
     Active Substance: PEMBROLIZUMAB
     Indication: Renal cell carcinoma
     Dosage: 200 MG, EVERY 3 WEEKS
     Route: 042

REACTIONS (12)
  - Death [Fatal]
  - Abdominal pain [Fatal]
  - Blood pressure abnormal [Fatal]
  - Decreased appetite [Fatal]
  - Dysphonia [Fatal]
  - Dyspnoea [Fatal]
  - Fatigue [Fatal]
  - Hepatic enzyme increased [Fatal]
  - Malaise [Fatal]
  - Nausea [Fatal]
  - Infusion site extravasation [Fatal]
  - Inappropriate schedule of product administration [Fatal]
